FAERS Safety Report 14602844 (Version 1)
Quarter: 2018Q1

REPORT INFORMATION
  Report Type: Spontaneous
  Country: US (occurrence: US)
  Receive Date: 20180304
  Receipt Date: 20180304
  Transmission Date: 20180509
  Serious: Yes (Hospitalization)
  Sender: FDA-Public Use
  Company Number: None

PATIENT
  Age: 69 Year
  Sex: Male

DRUGS (1)
  1. NIVOLUMAB [Suspect]
     Active Substance: NIVOLUMAB
     Indication: LUNG ADENOCARCINOMA STAGE IV
     Dosage: 250 MG OTHER IV
     Route: 042
     Dates: start: 20160812, end: 20170317

REACTIONS (4)
  - Colitis [None]
  - Disease progression [None]
  - Polyarthritis [None]
  - Metastases to bone [None]

NARRATIVE: CASE EVENT DATE: 20170331
